FAERS Safety Report 4322068-3 (Version None)
Quarter: 2004Q1

REPORT INFORMATION
  Report Type: 
  Country: None (occurrence: None)
  Receive Date: 20040319
  Receipt Date: 20040304
  Transmission Date: 20041129
  Serious: Yes (Other)
  Sender: FDA-Public Use
  Company Number: 234817

PATIENT
  Age: 62 Year
  Sex: Female
  Weight: 80.7 kg

DRUGS (1)
  1. VAGIFEM [Suspect]
     Indication: VAGINITIS ATROPHIC
     Dosage: 1 TAB , BIW , VAGINAL
     Route: 067
     Dates: start: 20031101, end: 20031201

REACTIONS (2)
  - BREAST DISCHARGE [None]
  - INTRADUCTAL PAPILLOMA OF BREAST [None]
